FAERS Safety Report 11054838 (Version 11)
Quarter: 2018Q1

REPORT INFORMATION
  Report Type: Report from Study
  Country: US (occurrence: US)
  Receive Date: 20150422
  Receipt Date: 20180323
  Transmission Date: 20180508
  Serious: Yes (Hospitalization)
  Sender: FDA-Public Use
  Company Number: US-PFIZER INC-2015131361

PATIENT
  Age: 78 Year
  Sex: Female
  Weight: 87.5 kg

DRUGS (7)
  1. ALLOPURINOL. [Concomitant]
     Active Substance: ALLOPURINOL
     Indication: GOUT
     Dosage: UNK, DAILY
     Route: 048
     Dates: start: 20141009
  2. BUMEX [Suspect]
     Active Substance: BUMETANIDE
     Indication: DIURETIC THERAPY
     Dosage: 2 MG, 2X/DAY
     Route: 048
     Dates: start: 20150325, end: 20150331
  3. MOMETASONE [Concomitant]
     Active Substance: MOMETASONE
     Indication: PRURITUS
     Dosage: 1 %, AS NEEDED
     Route: 061
     Dates: start: 20141004, end: 20150330
  4. WARFARIN [Concomitant]
     Active Substance: WARFARIN
     Indication: ANTICOAGULANT THERAPY
     Dosage: DAILY DOSE ADJUST PER CLINIC
     Route: 048
     Dates: start: 20150326, end: 20150330
  5. AMIODARONE HCL [Suspect]
     Active Substance: AMIODARONE HYDROCHLORIDE
     Indication: ARRHYTHMIA
     Dosage: UNK, DAILY
     Route: 048
     Dates: start: 20141003, end: 20150330
  6. PLACEBO [Suspect]
     Active Substance: UNSPECIFIED INGREDIENT
     Indication: CARDIOMYOPATHY
     Dosage: UNK UNK, 1X/DAY
     Route: 048
     Dates: start: 20150126, end: 20160222
  7. MAGNESIUM CITRATE. [Concomitant]
     Active Substance: MAGNESIUM CITRATE
     Indication: CONSTIPATION
     Dosage: UNK, DAILY AS NEEDED
     Route: 048
     Dates: start: 20141221, end: 20150329

REACTIONS (1)
  - Hypovolaemia [Recovered/Resolved]

NARRATIVE: CASE EVENT DATE: 20150330
